FAERS Safety Report 8562749 (Version 2)
Quarter: 2012Q4

REPORT INFORMATION
  Report Type: 
  Country: US (occurrence: US)
  Receive Date: 20120515
  Receipt Date: 20121204
  Transmission Date: 20130627
  Serious: No
  Sender: FDA-Public Use
  Company Number: US-ASTRAZENECA-2012SE29390

PATIENT
  Age: 49 Year
  Sex: Female

DRUGS (3)
  1. NEXIUM [Suspect]
     Route: 048
  2. PRILOSEC [Suspect]
     Route: 048
  3. DEXILENT [Concomitant]

REACTIONS (6)
  - Aphagia [Unknown]
  - Dysphagia [Unknown]
  - Throat tightness [Unknown]
  - Dyspepsia [Unknown]
  - Intentional drug misuse [Unknown]
  - Drug ineffective [Unknown]
